FAERS Safety Report 9965813 (Version 1)
Quarter: 2014Q1

REPORT INFORMATION
  Report Type: Report from Study
  Country: US (occurrence: US)
  Receive Date: 20140305
  Receipt Date: 20140305
  Transmission Date: 20141002
  Serious: No
  Sender: FDA-Public Use
  Company Number: US-ABBVIE-13P-163-1124761-00

PATIENT
  Age: 49 Year
  Sex: Female
  Weight: 61.29 kg

DRUGS (2)
  1. HUMIRA [Suspect]
     Indication: RHEUMATOID ARTHRITIS
     Dates: start: 2007, end: 20130506
  2. HUMIRA [Suspect]
     Dates: start: 20130720

REACTIONS (3)
  - Nasal septum deviation [Recovered/Resolved]
  - Bronchitis [Recovered/Resolved]
  - Nasal congestion [Recovered/Resolved]
